FAERS Safety Report 24955761 (Version 1)
Quarter: 2025Q1

REPORT INFORMATION
  Report Type: Spontaneous
  Country: US (occurrence: None)
  Receive Date: 20250211
  Receipt Date: 20250211
  Transmission Date: 20250408
  Serious: Yes (Hospitalization)
  Sender: FDA-CTU
  Company Number: None

PATIENT
  Sex: Male

DRUGS (4)
  1. SKYRIZI [Suspect]
     Active Substance: RISANKIZUMAB-RZAA
     Indication: Psoriasis
     Route: 058
     Dates: start: 20250122
  2. GABAPENTIN [Concomitant]
     Active Substance: GABAPENTIN
  3. JARDIANCE [Concomitant]
     Active Substance: EMPAGLIFLOZIN
  4. LOSARTAN POTASSIUM [Concomitant]
     Active Substance: LOSARTAN POTASSIUM

REACTIONS (3)
  - Cardiac failure [None]
  - Pulmonary oedema [None]
  - Therapy interrupted [None]
